FAERS Safety Report 24965440 (Version 1)
Quarter: 2025Q1

REPORT INFORMATION
  Report Type: Spontaneous
  Country: US (occurrence: None)
  Receive Date: 20250213
  Receipt Date: 20250213
  Transmission Date: 20250408
  Serious: Yes (Death)
  Sender: FDA-CTU
  Company Number: None

PATIENT
  Age: 57 Year
  Sex: Female

DRUGS (1)
  1. CAPECITABINE [Suspect]
     Active Substance: CAPECITABINE
     Indication: Oestrogen receptor assay positive
     Dosage: OTHER QUANTITY : 2000MG AND 1500MG;?FREQUENCY : TWICE A DAY;?

REACTIONS (1)
  - Death [None]
